FAERS Safety Report 6612050-5 (Version None)
Quarter: 2010Q1

REPORT INFORMATION
  Report Type: 
  Country: None (occurrence: None)
  Receive Date: 20100303
  Receipt Date: 20100223
  Transmission Date: 20100710
  Serious: Yes (Other)
  Sender: FDA-Public Use
  Company Number: B0608544A

PATIENT
  Sex: Male

DRUGS (3)
  1. ABACAVIR SULFATE [Suspect]
     Indication: HIV INFECTION
     Route: 065
     Dates: start: 20030101, end: 20090101
  2. KIVEXA [Suspect]
     Indication: HIV INFECTION
     Route: 065
     Dates: start: 20060101
  3. STOCRIN [Suspect]
     Indication: HIV INFECTION
     Dosage: 600MG PER DAY
     Route: 065
     Dates: start: 20030101

REACTIONS (6)
  - APHASIA [None]
  - HEMIPARESIS [None]
  - HYPOAESTHESIA [None]
  - LACUNAR INFARCTION [None]
  - TRANSIENT ISCHAEMIC ATTACK [None]
  - VISION BLURRED [None]
